FAERS Safety Report 9401918 (Version 2)
Quarter: 2013Q3

REPORT INFORMATION
  Report Type: Spontaneous
  Country: US (occurrence: US)
  Receive Date: 20130716
  Receipt Date: 20130805
  Transmission Date: 20140515
  Serious: No
  Sender: FDA-Public Use
  Company Number: US-PFIZER INC-2013204748

PATIENT
  Age: 50 Year
  Sex: Female
  Weight: 77.1 kg

DRUGS (7)
  1. SUTENT [Suspect]
     Indication: RENAL CELL CARCINOMA
     Dosage: 50 MG, 1X/DAY
     Route: 048
     Dates: start: 20130702
  2. LOPRESSOR [Suspect]
     Indication: HYPERTENSION
     Dosage: UNK
     Dates: end: 201307
  3. LOPRESSOR [Suspect]
     Dosage: UNK
     Dates: start: 201307
  4. ACETYLSALICYLIC ACID [Concomitant]
     Dosage: 81 MG, UNK
  5. LORTAB [Concomitant]
     Dosage: UNK
  6. GABAPENTIN [Concomitant]
     Dosage: UNK
  7. ZANTAC [Concomitant]
     Dosage: UNK

REACTIONS (4)
  - Nausea [Recovering/Resolving]
  - Hypertension [Not Recovered/Not Resolved]
  - Fatigue [Not Recovered/Not Resolved]
  - Dry skin [Not Recovered/Not Resolved]
